FAERS Safety Report 4325875-6 (Version None)
Quarter: 2004Q1

REPORT INFORMATION
  Report Type: 
  Country: None (occurrence: None)
  Receive Date: 20040329
  Receipt Date: 20040130
  Transmission Date: 20041129
  Serious: Yes (Life-Threatening, Hospitalization, Other)
  Sender: FDA-Public Use
  Company Number: US-MERCK-0402USA00033

PATIENT
  Age: 67 Year
  Sex: Female
  Weight: 77 kg

DRUGS (11)
  1. EMEND [Suspect]
     Indication: NAUSEA
     Route: 048
     Dates: start: 20031104, end: 20031104
  2. EMEND [Suspect]
     Route: 048
     Dates: start: 20031105, end: 20031106
  3. EMEND [Suspect]
     Indication: VOMITING
     Route: 048
     Dates: start: 20031104, end: 20031104
  4. EMEND [Suspect]
     Route: 048
     Dates: start: 20031105, end: 20031106
  5. CLODRONATE DISODIUM [Concomitant]
     Route: 065
  6. CYTOXAN [Suspect]
     Route: 065
  7. DECADRON [Concomitant]
     Route: 065
  8. ANZEMET [Concomitant]
     Route: 065
  9. EPIRUBICIN HYDROCHLORIDE [Suspect]
     Route: 065
  10. FLUOROURACIL [Suspect]
     Route: 065
  11. NEULASTA [Concomitant]
     Route: 065

REACTIONS (8)
  - CATHETER RELATED COMPLICATION [None]
  - DEEP VEIN THROMBOSIS [None]
  - HAEMOGLOBIN DECREASED [None]
  - INJECTION SITE ERYTHEMA [None]
  - PANCYTOPENIA [None]
  - PHARYNGOLARYNGEAL PAIN [None]
  - STOMATITIS [None]
  - WHITE BLOOD CELL COUNT INCREASED [None]
